FAERS Safety Report 16306596 (Version 1)
Quarter: 2019Q2

REPORT INFORMATION
  Report Type: Spontaneous
  Country: BR (occurrence: BR)
  Receive Date: 20190513
  Receipt Date: 20190513
  Transmission Date: 20190711
  Serious: Yes (Other)
  Sender: FDA-Public Use
  Company Number: BR-B.I. PHARMACEUTICALS,INC./RIDGEFIELD-2019-MI-000341

PATIENT
  Age: 80 Year
  Sex: Female
  Weight: 87 kg

DRUGS (9)
  1. ALOPURINOL [Concomitant]
     Active Substance: ALLOPURINOL
     Indication: DIABETES MELLITUS
     Dosage: ALOPURINOL 100 MG 1 TABLET 1X DAILY
     Route: 048
     Dates: start: 201812
  2. TRAYENTA [Suspect]
     Active Substance: LINAGLIPTIN
     Indication: TYPE 2 DIABETES MELLITUS
     Dosage: TRAYENTA 5 MG 1 TABLET 1X DAILY
     Route: 048
     Dates: start: 201812
  3. SOMALGIN CARDIO [Concomitant]
     Active Substance: ASPIRIN\DIHYDROXYALUMINUM AMINOACETATE ANHYDROUS\MAGNESIUM CARBONATE
     Indication: CARDIAC FAILURE
     Dosage: SOMALGIN CARDIO 100 MG 1 TABLET 1 X DAILY
     Route: 048
  4. APRESOLINA [Concomitant]
     Active Substance: HYDRALAZINE HYDROCHLORIDE
     Indication: HYPERTENSION
     Dosage: APRESOLINA 50 MG 1 TABLET 2X DAILY
     Route: 048
     Dates: start: 201812
  5. FUROSEMIDA [Concomitant]
     Active Substance: FUROSEMIDE
     Indication: RENAL FAILURE
     Dosage: FUROSEMIDA 40 MG 1 TABLET ONCE DAILY.
     Route: 048
  6. ALOPURINOL [Concomitant]
     Active Substance: ALLOPURINOL
     Indication: HYPERTENSION
  7. SINVASTATINA [Concomitant]
     Active Substance: SIMVASTATIN
     Indication: BLOOD CHOLESTEROL INCREASED
     Dosage: SINVASTATINA 40 MG 1 TABLET 1X DAILY
     Route: 048
  8. CONCARDIO [Concomitant]
     Active Substance: BISOPROLOL FUMARATE
     Indication: CARDIAC FAILURE
     Dosage: CONCARDIO 10 MG 1 TABLET 1 X DAILY
     Route: 048
  9. MACRODANTIN [Concomitant]
     Active Substance: NITROFURANTOIN
     Indication: ANTIBIOTIC THERAPY
     Dosage: MACRODANTINA 100 MG 1 TABLET 1 X DAILY
     Route: 048

REACTIONS (3)
  - Constipation [Not Recovered/Not Resolved]
  - Spinal fracture [Not Recovered/Not Resolved]
  - Fall [Recovered/Resolved]

NARRATIVE: CASE EVENT DATE: 201901
